FAERS Safety Report 4385807-1 (Version None)
Quarter: 2004Q2

REPORT INFORMATION
  Report Type: 
  Country: None (occurrence: None)
  Receive Date: 20040621
  Receipt Date: 20040505
  Transmission Date: 20050107
  Serious: Yes (Other)
  Sender: FDA-Public Use
  Company Number: PHBS2004CA06077

PATIENT
  Age: 53 Year
  Sex: Male

DRUGS (1)
  1. ELIDEL [Suspect]
     Indication: ROSACEA
     Dosage: UNK, BID
     Route: 061
     Dates: start: 20030801, end: 20031201

REACTIONS (2)
  - BASAL CELL CARCINOMA [None]
  - BIOPSY [None]
